FAERS Safety Report 6274900-4 (Version None)
Quarter: 2009Q3

REPORT INFORMATION
  Report Type: 
  Country: None (occurrence: None)
  Receive Date: 20090721
  Receipt Date: 20090716
  Transmission Date: 20100115
  Serious: Yes (Other)
  Sender: FDA-Public Use
  Company Number: US-B.I. PHARMACEUTICALS,INC./RIDGEFIELD-2009-BP-08451BP

PATIENT
  Sex: Male

DRUGS (5)
  1. AGGRENOX [Suspect]
     Indication: TRANSIENT ISCHAEMIC ATTACK
     Route: 048
     Dates: start: 20080601
  2. AGGRENOX [Suspect]
     Route: 048
     Dates: start: 20071201, end: 20080601
  3. OMEPRAZOLE [Concomitant]
     Indication: GASTROOESOPHAGEAL REFLUX DISEASE
  4. ASPIRIN [Concomitant]
     Indication: TRANSIENT ISCHAEMIC ATTACK
  5. SIMVASTATIN [Concomitant]
     Indication: PROPHYLAXIS

REACTIONS (1)
  - CEREBRAL INFARCTION [None]
